FAERS Safety Report 23189462 (Version 1)
Quarter: 2023Q4

REPORT INFORMATION
  Report Type: Spontaneous
  Country: US (occurrence: US)
  Receive Date: 20231116
  Receipt Date: 20231116
  Transmission Date: 20240110
  Serious: Yes (Other)
  Sender: FDA-Public Use
  Company Number: US-009507513-2311USA004327

PATIENT
  Sex: Male

DRUGS (1)
  1. KEYTRUDA [Suspect]
     Active Substance: PEMBROLIZUMAB
     Indication: Oesophageal cancer metastatic
     Dosage: UNK

REACTIONS (3)
  - Neuropathy peripheral [Unknown]
  - Myalgia [Recovering/Resolving]
  - Tendonitis [Unknown]
